FAERS Safety Report 22175818 (Version 4)
Quarter: 2023Q2

REPORT INFORMATION
  Report Type: Other
  Country: ES (occurrence: None)
  Receive Date: 20230405
  Receipt Date: 20230529
  Transmission Date: 20230722
  Serious: Yes (Death, Hospitalization, Other)
  Sender: FDA-Public Use
  Company Number: ES-ROCHE-3324054

PATIENT
  Age: 45 Year
  Sex: Female

DRUGS (4)
  1. HEMLIBRA [Suspect]
     Active Substance: EMICIZUMAB-KXWH
     Indication: Product used for unknown indication
     Route: 065
  2. DOMPERIDONE [Concomitant]
     Active Substance: DOMPERIDONE
     Route: 065
  3. RIVAROXABAN [Concomitant]
     Active Substance: RIVAROXABAN
     Route: 065
  4. SULFAMETHOXAZOLE\TRIMETHOPRIM [Concomitant]
     Active Substance: SULFAMETHOXAZOLE\TRIMETHOPRIM
     Route: 065

REACTIONS (8)
  - Heart disease congenital [Fatal]
  - Myocardial infarction [Fatal]
  - Cardiac failure [Fatal]
  - Ischaemic stroke [Unknown]
  - Microangiopathy [Recovered/Resolved]
  - Thrombocytopenia [Unknown]
  - Hyperuricaemia [Unknown]
  - Blood lactate dehydrogenase increased [Unknown]

NARRATIVE: CASE EVENT DATE: 20230101
